FAERS Safety Report 8515050-3 (Version None)
Quarter: 2012Q3

REPORT INFORMATION
  Report Type: 
  Country: None (occurrence: None)
  Receive Date: 20120705
  Receipt Date: 20120620
  Transmission Date: 20120928
  Serious: Yes (Other)
  Sender: FDA-Public Use
  Company Number: 2012P1040062

PATIENT
  Age: 90 Year
  Sex: Female

DRUGS (4)
  1. LASIX [Concomitant]
  2. THYROID TABLET [Concomitant]
  3. DIGOXIN [Concomitant]
  4. WARFARIN SODIUM [Suspect]
     Indication: ATRIAL FIBRILLATION

REACTIONS (3)
  - TOOTH DISORDER [None]
  - HIP FRACTURE [None]
  - FALL [None]
